FAERS Safety Report 13152977 (Version 1)
Quarter: 2017Q1

REPORT INFORMATION
  Report Type: Spontaneous
  Country: US (occurrence: US)
  Receive Date: 20170126
  Receipt Date: 20170126
  Transmission Date: 20170428
  Serious: No
  Sender: FDA-Public Use
  Company Number: US-GLENMARK PHARMACEUTICALS-2016GMK024624

PATIENT

DRUGS (1)
  1. INDOMETHACIN CAPSULES USP, 25MG [Suspect]
     Active Substance: INDOMETHACIN
     Indication: GOUT
     Dosage: UNK, PRN
     Route: 048

REACTIONS (1)
  - Blood glucose increased [Not Recovered/Not Resolved]
